FAERS Safety Report 8294500-4 (Version None)
Quarter: 2012Q2

REPORT INFORMATION
  Report Type: 
  Country: None (occurrence: None)
  Receive Date: 20120418
  Receipt Date: 20120410
  Transmission Date: 20120825
  Serious: Yes (Other)
  Sender: FDA-Public Use
  Company Number: US-ASTRAZENECA-2011SE65447

PATIENT
  Age: 46 Year
  Sex: Female

DRUGS (1)
  1. NEXIUM [Suspect]
     Route: 048

REACTIONS (5)
  - BLADDER CANCER [None]
  - RENAL CANCER [None]
  - MALAISE [None]
  - NEOPLASM MALIGNANT [None]
  - INTENTIONAL DRUG MISUSE [None]
